FAERS Safety Report 4854994-0 (Version None)
Quarter: 2005Q4

REPORT INFORMATION
  Report Type: 
  Country: None (occurrence: None)
  Receive Date: 20051214
  Receipt Date: 20051206
  Transmission Date: 20060501
  Serious: Yes (Hospitalization)
  Sender: FDA-Public Use
  Company Number: 2005RR-01294

PATIENT
  Age: 61 Year
  Sex: Male

DRUGS (2)
  1. DICLOFENAC SODIUM TABLETS 50MG (DICLOFENAC SODIUM) TABLET, 50MG [Suspect]
     Indication: MUSCULOSKELETAL PAIN
     Dosage: 50 MG TID ORAL
     Route: 048
     Dates: end: 20051026
  2. IBUPROFEN [Suspect]
     Indication: MUSCULOSKELETAL PAIN
     Dosage: 400 MG TID ORAL
     Route: 048
     Dates: end: 20051026

REACTIONS (2)
  - GASTROINTESTINAL HAEMORRHAGE [None]
  - HAEMATEMESIS [None]
